FAERS Safety Report 16485654 (Version 2)
Quarter: 2019Q3

REPORT INFORMATION
  Report Type: Report from Study
  Country: US (occurrence: US)
  Receive Date: 20190627
  Receipt Date: 20190702
  Transmission Date: 20191004
  Serious: No
  Sender: FDA-Public Use
  Company Number: US-SA-2019SA149694

PATIENT
  Age: 72 Year
  Sex: Female

DRUGS (1)
  1. INSULIN GLARGINE [Suspect]
     Active Substance: INSULIN GLARGINE
     Indication: TYPE 2 DIABETES MELLITUS
     Dosage: 42 U, QD
     Route: 058

REACTIONS (3)
  - Device operational issue [Unknown]
  - Musculoskeletal discomfort [Not Recovered/Not Resolved]
  - Malaise [Not Recovered/Not Resolved]
